FAERS Safety Report 6903033-6 (Version None)
Quarter: 2010Q3

REPORT INFORMATION
  Report Type: 
  Country: None (occurrence: None)
  Receive Date: 20100803
  Receipt Date: 20080611
  Transmission Date: 20110219
  Serious: No
  Sender: FDA-Public Use
  Company Number: US-PFIZER INC-2008036185

PATIENT
  Sex: Female
  Weight: 77.1 kg

DRUGS (6)
  1. LYRICA [Suspect]
     Indication: NEURALGIA
     Dates: start: 20080401
  2. LYRICA [Suspect]
     Indication: SCIATICA
  3. LYRICA [Suspect]
     Indication: NERVE INJURY
  4. SYNTHROID [Concomitant]
  5. ALBUTEROL [Concomitant]
  6. FIORICET [Concomitant]

REACTIONS (2)
  - MUSCULOSKELETAL STIFFNESS [None]
  - OEDEMA PERIPHERAL [None]
